FAERS Safety Report 4299126-5 (Version None)
Quarter: 2004Q1

REPORT INFORMATION
  Report Type: 
  Country: None (occurrence: None)
  Receive Date: 20040217
  Receipt Date: 20040211
  Transmission Date: 20041129
  Serious: Yes (Hospitalization)
  Sender: FDA-Public Use
  Company Number: 2004PK00296

PATIENT
  Age: 89 Year
  Sex: Female

DRUGS (9)
  1. METOPROLOL SUCCINATE [Suspect]
     Indication: HYPERTENSION
     Dosage: 47.5 MG DAILY PO
     Route: 048
     Dates: end: 20030411
  2. ACTRAPHANE HM [Suspect]
     Indication: DIABETES MELLITUS
     Dosage: 8 IU DAILY SQ
     Route: 058
     Dates: end: 20030411
  3. AQUAPOR TABLET [Concomitant]
  4. DIGITOXIN INJ [Concomitant]
  5. DURAGESIC [Concomitant]
  6. FURESIS [Concomitant]
  7. LEVOTHYROXINE SODIUM [Concomitant]
  8. PANTOZOL [Concomitant]
  9. SAROTEN [Concomitant]

REACTIONS (8)
  - AGGRESSION [None]
  - CARDIAC FAILURE [None]
  - DIABETIC NEPHROPATHY [None]
  - DRUG INTERACTION [None]
  - LOSS OF CONSCIOUSNESS [None]
  - MYOCARDIAL INFARCTION [None]
  - RENAL FAILURE ACUTE [None]
  - SHOCK HYPOGLYCAEMIC [None]
